FAERS Safety Report 10677630 (Version 3)
Quarter: 2015Q1

REPORT INFORMATION
  Report Type: Spontaneous
  Country: NO (occurrence: NO)
  Receive Date: 20141229
  Receipt Date: 20150122
  Transmission Date: 20150720
  Serious: Yes (Life-Threatening, Hospitalization, Other)
  Sender: FDA-Public Use
  Company Number: NO-AMGEN-NORSP2014100961

PATIENT
  Age: 35 Year
  Sex: Male
  Weight: 89 kg

DRUGS (1)
  1. ENBREL [Suspect]
     Active Substance: ETANERCEPT
     Indication: ANKYLOSING SPONDYLITIS
     Dosage: 50 MG, WEEKLY
     Route: 058
     Dates: start: 20040527, end: 20090620

REACTIONS (10)
  - Pyrexia [Recovered/Resolved]
  - Malaise [Recovered/Resolved]
  - Respiratory tract infection [Recovered/Resolved]
  - Diffuse large B-cell lymphoma [Recovered/Resolved]
  - Listless [Recovered/Resolved]
  - Nasopharyngitis [Recovered/Resolved]
  - Night sweats [Recovered/Resolved]
  - Feeling abnormal [Recovered/Resolved]
  - Activities of daily living impaired [Recovered/Resolved]
  - Dyspnoea exertional [Recovered/Resolved]

NARRATIVE: CASE EVENT DATE: 2007
